FAERS Safety Report 17704639 (Version 1)
Quarter: 2020Q2

REPORT INFORMATION
  Report Type: Spontaneous
  Country: US (occurrence: US)
  Receive Date: 20200424
  Receipt Date: 20200424
  Transmission Date: 20200714
  Serious: Yes (Other)
  Sender: FDA-Public Use
  Company Number: None

PATIENT
  Age: 59 Year
  Sex: Female
  Weight: 78.35 kg

DRUGS (21)
  1. REGLAN [Concomitant]
     Active Substance: METOCLOPRAMIDE HYDROCHLORIDE
  2. MULTIVITAMIN [Concomitant]
     Active Substance: VITAMINS
  3. METHADONE [Concomitant]
     Active Substance: METHADONE HYDROCHLORIDE
  4. HYDROMORPHONE [Concomitant]
     Active Substance: HYDROMORPHONE
  5. ACETAMINOPHEN. [Concomitant]
     Active Substance: ACETAMINOPHEN
  6. CITRACAL + D3 [Concomitant]
  7. XYRTEC [Concomitant]
  8. OMEPRAZOLE. [Concomitant]
     Active Substance: OMEPRAZOLE
  9. IBRANCE [Concomitant]
     Active Substance: PALBOCICLIB
  10. SENEKOT S [Concomitant]
  11. LEVOTHYROXINE. [Concomitant]
     Active Substance: LEVOTHYROXINE
  12. XGEVA [Concomitant]
     Active Substance: DENOSUMAB
  13. VENLAFAXINE [Concomitant]
     Active Substance: VENLAFAXINE HYDROCHLORIDE
  14. PROCHLORPERAZINE. [Concomitant]
     Active Substance: PROCHLORPERAZINE
  15. CAPECITABINE. [Suspect]
     Active Substance: CAPECITABINE
     Indication: BREAST CANCER FEMALE
     Route: 048
     Dates: start: 20200323
  16. LIPITOR [Concomitant]
     Active Substance: ATORVASTATIN CALCIUM
  17. KLONOPIN [Concomitant]
     Active Substance: CLONAZEPAM
  18. TRAZODONE [Concomitant]
     Active Substance: TRAZODONE HYDROCHLORIDE
  19. PREDNISONE. [Concomitant]
     Active Substance: PREDNISONE
  20. FASLODEX [Concomitant]
     Active Substance: FULVESTRANT
  21. FENTANYL. [Concomitant]
     Active Substance: FENTANYL

REACTIONS (4)
  - Palmar-plantar erythrodysaesthesia syndrome [None]
  - Abdominal pain upper [None]
  - Stomatitis [None]
  - Fatigue [None]

NARRATIVE: CASE EVENT DATE: 20200323
